FAERS Safety Report 7084705-2 (Version None)
Quarter: 2010Q4

REPORT INFORMATION
  Report Type: 
  Country: None (occurrence: None)
  Receive Date: 20101104
  Receipt Date: 20101029
  Transmission Date: 20110411
  Serious: Yes (Other)
  Sender: FDA-Public Use
  Company Number: US-AMGEN-QUU421344

PATIENT

DRUGS (4)
  1. NPLATE [Suspect]
     Indication: IDIOPATHIC THROMBOCYTOPENIC PURPURA
     Dosage: 3 A?G/KG, QWK
     Route: 058
     Dates: start: 20100128, end: 20100401
  2. NPLATE [Suspect]
     Dosage: UNK
     Dates: start: 20100128, end: 20100401
  3. LENALIDOMIDE [Concomitant]
     Dosage: UNK UNK, UNK
     Dates: start: 20100101
  4. DEXAMETHASONE [Concomitant]
     Dosage: UNK UNK, UNK
     Dates: start: 20100101

REACTIONS (2)
  - MULTIPLE MYELOMA [None]
  - MYELODYSPLASTIC SYNDROME [None]
